FAERS Safety Report 23362955 (Version 1)
Quarter: 2024Q1

REPORT INFORMATION
  Report Type: Spontaneous
  Country: AZ (occurrence: AZ)
  Receive Date: 20240103
  Receipt Date: 20240103
  Transmission Date: 20240409
  Serious: Yes (Hospitalization, Other)
  Sender: FDA-Public Use
  Company Number: AZ-SA-SAC20231228000960

PATIENT
  Sex: Female
  Weight: 60 kg

DRUGS (1)
  1. AMARYL [Suspect]
     Active Substance: GLIMEPIRIDE
     Dosage: 10 DF
     Route: 048

REACTIONS (16)
  - Nephropathy toxic [Recovered/Resolved]
  - Tachycardia [Recovered/Resolved]
  - Asthenia [Recovered/Resolved]
  - Jaundice [Recovered/Resolved]
  - Lymphopenia [Recovered/Resolved]
  - Leukocytosis [Recovered/Resolved]
  - Hypoglycaemia [Recovered/Resolved]
  - Oliguria [Recovered/Resolved]
  - Haematotoxicity [Recovered/Resolved]
  - Blood creatinine increased [Recovered/Resolved]
  - Red blood cell sedimentation rate increased [Recovered/Resolved]
  - Haemoglobin decreased [Recovered/Resolved]
  - Haematocrit decreased [Recovered/Resolved]
  - Conjunctival disorder [Recovered/Resolved]
  - Skin discolouration [Recovered/Resolved]
  - Pallor [Recovered/Resolved]

NARRATIVE: CASE EVENT DATE: 20231122
